FAERS Safety Report 26094692 (Version 1)
Quarter: 2025Q4

REPORT INFORMATION
  Report Type: Spontaneous
  Country: US (occurrence: US)
  Receive Date: 20251126
  Receipt Date: 20251126
  Transmission Date: 20260118
  Serious: No
  Sender: ELI LILLY AND COMPANY
  Company Number: US-ELI_LILLY_AND_COMPANY-US202511027240

PATIENT
  Age: 59 Year
  Sex: Female

DRUGS (1)
  1. VERZENIO [Suspect]
     Active Substance: ABEMACICLIB
     Indication: Breast cancer female
     Dosage: 50 MG, BID
     Route: 048
     Dates: start: 20251110

REACTIONS (8)
  - Tinnitus [Unknown]
  - Neck pain [Unknown]
  - Neuropathy peripheral [Unknown]
  - Sinus disorder [Unknown]
  - Dizziness [Unknown]
  - Headache [Unknown]
  - Constipation [Unknown]
  - Arthralgia [Unknown]
